FAERS Safety Report 10576384 (Version 2)
Quarter: 2015Q2

REPORT INFORMATION
  Report Type: Report from Study
  Country: JP (occurrence: JP)
  Receive Date: 20141111
  Receipt Date: 20150407
  Transmission Date: 20150821
  Serious: Yes (Death, Other)
  Sender: FDA-Public Use
  Company Number: JP-INCYTE CORPORATION-2014IN003285

PATIENT
  Sex: Female

DRUGS (5)
  1. JAKAFI [Suspect]
     Active Substance: RUXOLITINIB
     Indication: MYELOFIBROSIS
     Dosage: 5 MG, BID
     Route: 048
     Dates: start: 20140908, end: 20141009
  2. PRIMOBOLAN-DEPOT [Concomitant]
     Active Substance: METHENOLONE ENANTHATE
     Indication: MYELOFIBROSIS
     Dosage: UNK
     Route: 048
     Dates: start: 20130713, end: 20140320
  3. HYDREA [Concomitant]
     Active Substance: HYDROXYUREA
     Indication: MYELOFIBROSIS
     Dosage: UNK
     Dates: start: 20130606, end: 20141009
  4. ALKERAN [Concomitant]
     Active Substance: MELPHALAN
     Indication: MYELOFIBROSIS
     Dosage: UNK
     Route: 048
     Dates: start: 20130715, end: 20131230
  5. THALED [Concomitant]
     Active Substance: THALIDOMIDE
     Indication: MYELOFIBROSIS
     Dosage: UNK
     Dates: start: 20140318, end: 20140903

REACTIONS (2)
  - Acute leukaemia [Fatal]
  - Genital herpes [Recovering/Resolving]

NARRATIVE: CASE EVENT DATE: 201409
